FAERS Safety Report 5093322-5 (Version None)
Quarter: 2006Q3

REPORT INFORMATION
  Report Type: 
  Country: None (occurrence: None)
  Receive Date: 20060828
  Receipt Date: 20060818
  Transmission Date: 20061208
  Serious: Yes (Hospitalization)
  Sender: FDA-Public Use
  Company Number: 2006100429

PATIENT
  Age: 40 Year
  Sex: Female

DRUGS (5)
  1. LIPITOR [Suspect]
     Indication: CORONARY ARTERY DISEASE
     Dosage: 40 MG (40 MG, 1 IN 1 D), ORAL
     Route: 048
  2. ANTIPSYCHOTICS (ANTIPSYCHOTICS) [Concomitant]
  3. SSRI (SSRI) [Concomitant]
  4. ACETAMINOPHEN [Concomitant]
  5. IBUPROFEN [Concomitant]

REACTIONS (3)
  - ABDOMINAL PAIN [None]
  - GLOMERULONEPHRITIS [None]
  - RHABDOMYOLYSIS [None]
